FAERS Safety Report 6918012-2 (Version None)
Quarter: 2010Q3

REPORT INFORMATION
  Report Type: 
  Country: None (occurrence: None)
  Receive Date: 20100810
  Receipt Date: 20091019
  Transmission Date: 20110219
  Serious: Yes (Other)
  Sender: FDA-Public Use
  Company Number: US-PFIZER INC-2009266328

PATIENT
  Sex: Male

DRUGS (2)
  1. TOVIAZ [Suspect]
     Indication: HYPERTONIC BLADDER
     Route: 048
     Dates: start: 20090901, end: 20090902
  2. AVODART [Concomitant]
     Dosage: UNK

REACTIONS (1)
  - URINARY RETENTION [None]
